FAERS Safety Report 4680543-6 (Version None)
Quarter: 2005Q2

REPORT INFORMATION
  Report Type: 
  Country: None (occurrence: None)
  Receive Date: 20050601
  Receipt Date: 20050513
  Transmission Date: 20051028
  Serious: Yes (Hospitalization)
  Sender: FDA-Public Use
  Company Number: FR_050506413

PATIENT
  Age: 48 Year
  Sex: Male
  Weight: 74 kg

DRUGS (6)
  1. GEMZAR [Suspect]
     Indication: METASTATIC BRONCHIAL CARCINOMA
     Dates: start: 20050118
  2. CISPLATIN [Concomitant]
  3. DEPAKENE [Concomitant]
  4. URBANYL (CLOBAZAM) [Concomitant]
  5. IMUDON [Concomitant]
  6. NEURONTIN (GABAPENTIN PFIZER) [Concomitant]

REACTIONS (10)
  - ASTHENIA [None]
  - COUGH [None]
  - CREPITATIONS [None]
  - HAEMOGLOBIN DECREASED [None]
  - NEUTROPHIL COUNT DECREASED [None]
  - PLATELET COUNT DECREASED [None]
  - PURPURA [None]
  - PYREXIA [None]
  - RED BLOOD CELL COUNT DECREASED [None]
  - TACHYPNOEA [None]
